FAERS Safety Report 4519915-9 (Version None)
Quarter: 2004Q4

REPORT INFORMATION
  Report Type: 
  Country: None (occurrence: None)
  Receive Date: 20041207
  Receipt Date: 20041123
  Transmission Date: 20050328
  Serious: Yes (Hospitalization)
  Sender: FDA-Public Use
  Company Number: FR-JNJFOC-20041106062

PATIENT
  Age: 16 Year
  Sex: Male

DRUGS (4)
  1. SPORANOX [Suspect]
     Route: 049
  2. SPORANOX [Suspect]
     Route: 049
  3. PROGRAF [Interacting]
     Indication: LIVER TRANSPLANT
     Route: 049
     Dates: start: 19970101
  4. PROGRAF [Interacting]
     Indication: LUNG TRANSPLANT
     Route: 049
     Dates: start: 19970101

REACTIONS (4)
  - DRUG INTERACTION [None]
  - HAEMODIALYSIS [None]
  - RENAL FAILURE [None]
  - RENAL TRANSPLANT [None]
